FAERS Safety Report 5542778-X (Version None)
Quarter: 2007Q4

REPORT INFORMATION
  Report Type: 
  Country: None (occurrence: None)
  Receive Date: 20071210
  Receipt Date: 20071129
  Transmission Date: 20080405
  Serious: Yes (Other)
  Sender: FDA-Public Use
  Company Number: DK-PFIZER INC-2007080336

PATIENT
  Sex: Male
  Weight: 86 kg

DRUGS (2)
  1. SUTENT [Suspect]
     Indication: RENAL CELL CARCINOMA STAGE UNSPECIFIED
     Route: 048
     Dates: start: 20070515, end: 20070827
  2. PREDNISOLONE [Concomitant]
     Route: 048

REACTIONS (4)
  - BLISTER [None]
  - ERYTHEMA [None]
  - OEDEMA PERIPHERAL [None]
  - SKIN EXFOLIATION [None]
